FAERS Safety Report 24155272 (Version 2)
Quarter: 2024Q3

REPORT INFORMATION
  Report Type: Spontaneous
  Country: IL (occurrence: IL)
  Receive Date: 20240731
  Receipt Date: 20240808
  Transmission Date: 20241016
  Serious: No
  Sender: ALKEM
  Company Number: IL-ALKEM LABORATORIES LIMITED-IL-ALKEM-2024-16260

PATIENT
  Age: 33 Year
  Sex: Female

DRUGS (11)
  1. CHOLESTYRAMINE [Suspect]
     Active Substance: CHOLESTYRAMINE
     Indication: Cholestasis of pregnancy
     Dosage: 4 GRAM, QD
     Route: 065
  2. BETAMETHASONE [Suspect]
     Active Substance: BETAMETHASONE\BETAMETHASONE DIPROPIONATE
     Indication: Product used for unknown indication
     Dosage: 12 MILLIGRAM, QD
     Route: 065
  3. MERCAPTOPURINE [Suspect]
     Active Substance: MERCAPTOPURINE
     Indication: Cholestasis of pregnancy
     Dosage: 50 MILLIGRAM
     Route: 065
  4. RIFAMPIN [Suspect]
     Active Substance: RIFAMPIN
     Indication: Cholestasis of pregnancy
     Dosage: 600 MILLIGRAM, TID
     Route: 065
  5. RIFAMPIN [Suspect]
     Active Substance: RIFAMPIN
     Dosage: 300 MILLIGRAM, TID
     Route: 065
  6. RIFAMPIN [Suspect]
     Active Substance: RIFAMPIN
     Dosage: 200 MILLIGRAM, TID
     Route: 065
  7. URSODIOL [Suspect]
     Active Substance: URSODIOL
     Indication: Cholestasis of pregnancy
     Dosage: 3600 MILLIGRAM, QD
     Route: 065
  8. URSODIOL [Suspect]
     Active Substance: URSODIOL
     Dosage: 1200 MILLIGRAM, TID
     Route: 065
  9. URSODIOL [Suspect]
     Active Substance: URSODIOL
     Dosage: 900 MILLIGRAM, TID
     Route: 065
  10. URSODIOL [Suspect]
     Active Substance: URSODIOL
     Dosage: 600 MILLIGRAM, TID
     Route: 065
  11. URSODIOL [Suspect]
     Active Substance: URSODIOL
     Dosage: 300 MILLIGRAM, QID
     Route: 065

REACTIONS (5)
  - Coagulopathy [Unknown]
  - Hypoglycaemia [Unknown]
  - Premature delivery [Unknown]
  - Exposure during pregnancy [Unknown]
  - Drug ineffective [Unknown]
